FAERS Safety Report 6271428-2 (Version None)
Quarter: 2009Q3

REPORT INFORMATION
  Report Type: 
  Country: None (occurrence: None)
  Receive Date: 20090715
  Receipt Date: 20090715
  Transmission Date: 20100115
  Serious: Yes (Hospitalization)
  Sender: FDA-Public Use
  Company Number: None

PATIENT
  Age: 47 Year
  Sex: Female

DRUGS (7)
  1. ERBITUX [Suspect]
     Indication: COLORECTAL CANCER
     Dosage: 452MG/IV ONCE WEEKLY
     Route: 042
     Dates: start: 20090619, end: 20090702
  2. ERBITUX [Suspect]
     Indication: HEAD AND NECK CANCER
     Dosage: 452MG/IV ONCE WEEKLY
     Route: 042
     Dates: start: 20090619, end: 20090702
  3. ERLOTINIB 150MG TABS [Suspect]
     Indication: NON-SMALL CELL LUNG CANCER
     Dosage: 150MG TABS PO DAILY
     Route: 048
     Dates: start: 20090619, end: 20090702
  4. DILAUDID [Concomitant]
  5. OXYCODONE [Concomitant]
  6. DOXCYCLINE [Concomitant]
  7. WELLBUTRIN [Concomitant]

REACTIONS (7)
  - ASTHENIA [None]
  - CHEST PAIN [None]
  - FOLLICULITIS [None]
  - HEART RATE INCREASED [None]
  - MALAISE [None]
  - PRODUCTIVE COUGH [None]
  - PYREXIA [None]
